FAERS Safety Report 9166514 (Version 1)
Quarter: 2013Q1

REPORT INFORMATION
  Report Type: Spontaneous
  Country: GB (occurrence: GB)
  Receive Date: 20130315
  Receipt Date: 20130315
  Transmission Date: 20140127
  Serious: Yes (Other)
  Sender: FDA-Public Use
  Company Number: GB-TEVA-390934ISR

PATIENT
  Sex: Female

DRUGS (1)
  1. DIAZEPAM [Suspect]
     Route: 065

REACTIONS (3)
  - Victim of child abuse [Unknown]
  - Intentional drug misuse [Unknown]
  - Overdose [Unknown]
